FAERS Safety Report 7253618-5 (Version None)
Quarter: 2011Q1

REPORT INFORMATION
  Report Type: 
  Country: None (occurrence: None)
  Receive Date: 20110129
  Receipt Date: 20100309
  Transmission Date: 20110831
  Serious: No
  Sender: FDA-Public Use
  Company Number: US-ABBOTT-10P-163-0631334-00

PATIENT
  Sex: Male
  Weight: 71.732 kg

DRUGS (2)
  1. HUMIRA [Suspect]
     Dates: start: 20080310
  2. HUMIRA [Suspect]
     Indication: CROHN'S DISEASE

REACTIONS (2)
  - CONDITION AGGRAVATED [None]
  - ARTHRALGIA [None]
